FAERS Safety Report 5734560-5 (Version None)
Quarter: 2008Q2

REPORT INFORMATION
  Report Type: 
  Country: None (occurrence: None)
  Receive Date: 20080512
  Receipt Date: 20080430
  Transmission Date: 20081010
  Serious: Yes (Other)
  Sender: FDA-Public Use
  Company Number: US-AMGEN-QUU276922

PATIENT
  Sex: Male
  Weight: 85.8 kg

DRUGS (2)
  1. ENBREL [Suspect]
     Indication: PSORIATIC ARTHROPATHY
     Route: 058
     Dates: start: 20070701, end: 20080428
  2. METHOTREXATE [Suspect]
     Route: 048
     Dates: start: 20070701, end: 20080428

REACTIONS (1)
  - PARKINSON'S DISEASE [None]
